FAERS Safety Report 5600138-7 (Version None)
Quarter: 2008Q1

REPORT INFORMATION
  Report Type: 
  Country: None (occurrence: None)
  Receive Date: 20080123
  Receipt Date: 20080116
  Transmission Date: 20080703
  Serious: Yes (Other)
  Sender: FDA-Public Use
  Company Number: B0504658A

PATIENT
  Age: 70 Year
  Sex: Male

DRUGS (7)
  1. AVANDAMET [Suspect]
     Dosage: 3TAB PER DAY
     Route: 048
     Dates: start: 20060726, end: 20070924
  2. ISOSORBIDE MONONITRATE [Concomitant]
     Route: 048
     Dates: start: 20070524
  3. BISOPROLOL FUMARATE [Concomitant]
     Route: 048
     Dates: start: 20070524
  4. ATACAND [Concomitant]
     Indication: HYPERTENSION
     Route: 048
     Dates: start: 20060426
  5. SIMVASTATIN [Concomitant]
     Route: 048
     Dates: start: 20060220
  6. ORIGLUCON [Concomitant]
     Indication: DIABETES MELLITUS
     Route: 048
     Dates: start: 19950501
  7. THYROXIN [Concomitant]
     Indication: HYPERTHYROIDISM
     Route: 048
     Dates: start: 19870610

REACTIONS (1)
  - ANAEMIA HAEMOLYTIC AUTOIMMUNE [None]
